FAERS Safety Report 15904147 (Version 2)
Quarter: 2019Q2

REPORT INFORMATION
  Report Type: Spontaneous
  Country: US (occurrence: US)
  Receive Date: 20190204
  Receipt Date: 20190412
  Transmission Date: 20190711
  Serious: Yes (Death, Hospitalization, Disabling)
  Sender: FDA-Public Use
  Company Number: US-ROCHE-2257894

PATIENT
  Age: 64 Year
  Sex: Female

DRUGS (1)
  1. ACTEMRA [Suspect]
     Active Substance: TOCILIZUMAB
     Indication: RHEUMATOID ARTHRITIS
     Route: 042

REACTIONS (2)
  - Intestinal perforation [Unknown]
  - Sepsis [Fatal]

NARRATIVE: CASE EVENT DATE: 201706
